FAERS Safety Report 15273152 (Version 4)
Quarter: 2019Q1

REPORT INFORMATION
  Report Type: Spontaneous
  Country: US (occurrence: US)
  Receive Date: 20180813
  Receipt Date: 20190118
  Transmission Date: 20190417
  Serious: Yes (Hospitalization)
  Sender: FDA-Public Use
  Company Number: US-ELI_LILLY_AND_COMPANY-US201808004336

PATIENT
  Age: 63 Year
  Sex: Male

DRUGS (19)
  1. TALTZ [Suspect]
     Active Substance: IXEKIZUMAB
     Indication: PSORIASIS
     Dosage: 80 MG, LOADING DOSE, TWO 80MG INJECTIONS
     Route: 058
     Dates: start: 20180415
  2. LOSARTAN. [Concomitant]
     Active Substance: LOSARTAN
     Indication: HYPERTENSION
  3. TRIAMCINOLONE [Concomitant]
     Active Substance: TRIAMCINOLONE
     Dosage: 0.1 %, UNKNOWN
     Route: 065
  4. TALTZ [Suspect]
     Active Substance: IXEKIZUMAB
     Dosage: 80 MG, WEEK 2, 4, 6, 8, 10 AND 12
     Route: 065
     Dates: start: 20180510, end: 20180614
  5. COZAAR [Concomitant]
     Active Substance: LOSARTAN POTASSIUM
     Dosage: 25 MG, UNKNOWN
     Route: 065
  6. LIDEX [Concomitant]
     Active Substance: FLUOCINONIDE
     Dosage: 0.05 %, UNKNOWN
     Route: 065
  7. CLOBETASOL [Concomitant]
     Active Substance: CLOBETASOL
     Indication: PSORIASIS
     Dosage: UNK, BID
     Route: 065
  8. INDOCIN [Concomitant]
     Active Substance: INDOMETHACIN
  9. ANUSOL-HC [BENZYL BENZOATE;BISMUTH HYDROXIDE; [Concomitant]
     Dosage: 25 MG, UNKNOWN
     Route: 065
  10. TEMOVATE [Concomitant]
     Active Substance: CLOBETASOL PROPIONATE
     Dosage: 0.05 %, UNKNOWN
     Route: 065
  11. FLONASE [Concomitant]
     Active Substance: FLUTICASONE PROPIONATE
     Dosage: 50 UG, UNKNOWN
     Route: 065
  12. CARMOL [UREA] [Concomitant]
     Dosage: 40 %, UNKNOWN
     Route: 065
  13. NORCO [Concomitant]
     Active Substance: ACETAMINOPHEN\HYDROCODONE BITARTRATE
     Dosage: UNK, UNKNOWN
     Route: 065
  14. VOLTAREN [Concomitant]
     Active Substance: DICLOFENAC SODIUM
     Dosage: 75 MG, UNKNOWN
     Route: 065
  15. TALTZ [Suspect]
     Active Substance: IXEKIZUMAB
     Dosage: 80 MG, EVERY FOUR WEEKS
     Route: 065
  16. LIPITOR [Concomitant]
     Active Substance: ATORVASTATIN CALCIUM
     Dosage: 10 MG, UNKNOWN
     Route: 065
  17. ANUSOL-HC [BENZYL BENZOATE;BISMUTH HYDROXIDE; [Concomitant]
     Dosage: 2.5 %, UNKNOWN
     Route: 054
  18. COLCHICINE. [Concomitant]
     Active Substance: COLCHICINE
  19. TACLONEX [Concomitant]
     Active Substance: BETAMETHASONE DIPROPIONATE\CALCIPOTRIENE\CALCIPOTRIENE HYDRATE
     Dosage: UNK, UNKNOWN
     Route: 065

REACTIONS (9)
  - Myalgia [Recovered/Resolved]
  - Gout [Recovered/Resolved]
  - Anaemia [Not Recovered/Not Resolved]
  - Thrombocytopenia [Not Recovered/Not Resolved]
  - Anal abscess [Recovering/Resolving]
  - Leukopenia [Not Recovered/Not Resolved]
  - Immune thrombocytopenic purpura [Not Recovered/Not Resolved]
  - Neutropenia [Not Recovered/Not Resolved]
  - Vitamin B12 decreased [Unknown]

NARRATIVE: CASE EVENT DATE: 20180709
